FAERS Safety Report 5045100-0 (Version None)
Quarter: 2006Q3

REPORT INFORMATION
  Report Type: 
  Country: None (occurrence: None)
  Receive Date: 20060707
  Receipt Date: 20060626
  Transmission Date: 20061208
  Serious: Yes (Hospitalization)
  Sender: FDA-Public Use
  Company Number: 2006PK01451

PATIENT
  Age: 49 Year
  Sex: Female

DRUGS (8)
  1. SEROQUEL [Suspect]
     Dosage: 100 TO 900 MG DAILY
     Dates: start: 20060104, end: 20060122
  2. SEROQUEL [Suspect]
     Route: 048
     Dates: start: 20060123, end: 20060202
  3. NORTRIPTYLINE HCL [Suspect]
     Dosage: 25 - 200 MG
     Route: 048
     Dates: start: 20060104, end: 20060124
  4. NORTRIPTYLINE HCL [Suspect]
     Route: 048
     Dates: start: 20060125, end: 20060202
  5. NORTRIPTYLINE HCL [Suspect]
     Dosage: 150 MG - 75 MG
     Route: 048
     Dates: start: 20060203, end: 20060204
  6. MELNEURIN [Interacting]
     Route: 048
     Dates: start: 20060130, end: 20060201
  7. MELNEURIN [Interacting]
     Route: 048
     Dates: start: 20060202, end: 20060210
  8. MELNEURIN [Interacting]
     Route: 048
     Dates: start: 20060211, end: 20060328

REACTIONS (9)
  - ABNORMAL BEHAVIOUR [None]
  - ANXIETY [None]
  - DELIRIUM [None]
  - DELUSION [None]
  - DISORIENTATION [None]
  - DRUG INTERACTION [None]
  - FUMBLING [None]
  - HALLUCINATIONS, MIXED [None]
  - RESTLESSNESS [None]
